FAERS Safety Report 19865247 (Version 1)
Quarter: 2021Q3

REPORT INFORMATION
  Report Type: Spontaneous
  Country: US (occurrence: US)
  Receive Date: 20210921
  Receipt Date: 20210921
  Transmission Date: 20211014
  Serious: No
  Sender: FDA-Public Use
  Company Number: None

PATIENT
  Age: 39 Year
  Sex: Female
  Weight: 54.9 kg

DRUGS (6)
  1. ZYRTEC [Concomitant]
     Active Substance: CETIRIZINE HYDROCHLORIDE
  2. AMITIZA [Suspect]
     Active Substance: LUBIPROSTONE
     Indication: IRRITABLE BOWEL SYNDROME
     Dosage: ?          OTHER STRENGTH:MCG;QUANTITY:1 CAPSULE(S);?
     Route: 048
     Dates: start: 20210918, end: 20210918
  3. MULTIVITAMIN [Concomitant]
     Active Substance: VITAMINS
  4. FLONASE [Concomitant]
     Active Substance: FLUTICASONE PROPIONATE
  5. AMITIZA [Suspect]
     Active Substance: LUBIPROSTONE
     Indication: CONSTIPATION
     Dosage: ?          OTHER STRENGTH:MCG;QUANTITY:1 CAPSULE(S);?
     Route: 048
     Dates: start: 20210918, end: 20210918
  6. AMITRIPTYLINE [Concomitant]
     Active Substance: AMITRIPTYLINE

REACTIONS (5)
  - Cough [None]
  - Dysphonia [None]
  - Throat tightness [None]
  - Chest discomfort [None]
  - Dyspnoea [None]

NARRATIVE: CASE EVENT DATE: 20210918
